FAERS Safety Report 8849847 (Version 2)
Quarter: 2012Q4

REPORT INFORMATION
  Report Type: Report from Study
  Country: GB (occurrence: GB)
  Receive Date: 20121019
  Receipt Date: 20121127
  Transmission Date: 20130627
  Serious: Yes (Death, Life-Threatening, Hospitalization, Other)
  Sender: FDA-Public Use
  Company Number: GB-ROCHE-1112155

PATIENT
  Age: 76 Year
  Sex: Female
  Weight: 57 kg

DRUGS (5)
  1. RITUXIMAB [Suspect]
     Indication: RHEUMATOID ARTHRITIS
     Route: 065
     Dates: start: 20110208, end: 20111204
  2. METHOTREXATE [Concomitant]
     Route: 065
     Dates: start: 200509
  3. FOLIC ACID [Concomitant]
  4. WARFARIN [Concomitant]
  5. CO-BENELDOPA [Concomitant]

REACTIONS (4)
  - Pneumonia [Fatal]
  - Cardiac failure [Fatal]
  - Sepsis [Unknown]
  - Bronchiectasis [Unknown]
